FAERS Safety Report 15348642 (Version 1)
Quarter: 2018Q3

REPORT INFORMATION
  Report Type: Spontaneous
  Country: US (occurrence: US)
  Receive Date: 20180829
  Receipt Date: 20180829
  Transmission Date: 20181010
  Serious: Yes (Hospitalization, Disabling)
  Sender: FDA-Public Use
  Company Number: None

PATIENT
  Age: 45 Year
  Sex: Male
  Weight: 77.11 kg

DRUGS (10)
  1. MIRTAZAPINE. [Suspect]
     Active Substance: MIRTAZAPINE
     Indication: INSOMNIA
  2. LORATADINE. [Concomitant]
     Active Substance: LORATADINE
  3. KETOCONAZOLE 2% [Concomitant]
     Active Substance: KETOCONAZOLE
  4. CHLORHEXIDNE 4% [Concomitant]
  5. MIRTAZAPINE. [Suspect]
     Active Substance: MIRTAZAPINE
     Indication: ANXIETY
     Dosage: ?          QUANTITY:1 PILL;?
     Route: 048
     Dates: start: 20160628, end: 20170926
  6. CLOBETASOL 0.05% [Concomitant]
     Active Substance: CLOBETASOL
  7. MIRTAZAPINE. [Suspect]
     Active Substance: MIRTAZAPINE
     Indication: MAJOR DEPRESSION
  8. CLOTRIMAZOLE 1% CREAM (ANTI FUNGAL) [Concomitant]
  9. NYSTATIN?TRIAMCINOLONE [Concomitant]
  10. IBUPROFEN. [Concomitant]
     Active Substance: IBUPROFEN

REACTIONS (8)
  - Skin haemorrhage [None]
  - Drug ineffective [None]
  - Musculoskeletal disorder [None]
  - Pruritus [None]
  - Wound [None]
  - Skin disorder [None]
  - Therapy change [None]
  - Skin ulcer [None]

NARRATIVE: CASE EVENT DATE: 20170304
